FAERS Safety Report 26126526 (Version 1)
Quarter: 2025Q4

REPORT INFORMATION
  Report Type: Spontaneous
  Country: US (occurrence: US)
  Receive Date: 20251205
  Receipt Date: 20251205
  Transmission Date: 20260118
  Serious: Yes (Other)
  Sender: LANTHEUS MEDICAL IMAGING
  Company Number: US-LANTHEUS-LMI-2025-01567

PATIENT
  Age: 46 Year
  Sex: Female
  Weight: 67 kg

DRUGS (1)
  1. DEFINITY [Suspect]
     Active Substance: PERFLUTREN
     Indication: Echocardiogram
     Dosage: 5 MILLILITRE (1.3 ML OF DEFINITY PREPARED IN 8.7 ML NS) OVER 5 MINUTES
     Dates: start: 20251126, end: 20251126

REACTIONS (3)
  - Cardiac dysfunction [Unknown]
  - Oxygen saturation decreased [Unknown]
  - Lung disorder [Unknown]

NARRATIVE: CASE EVENT DATE: 20251126
